FAERS Safety Report 21620350 (Version 1)
Quarter: 2022Q4

REPORT INFORMATION
  Report Type: Spontaneous
  Country: US (occurrence: US)
  Receive Date: 20221121
  Receipt Date: 20221121
  Transmission Date: 20230112
  Serious: No
  Sender: FDA-Public Use
  Company Number: US-BRISTOL-MYERS SQUIBB COMPANY-2022-139812

PATIENT
  Age: 15 Year
  Sex: Female

DRUGS (1)
  1. ORENCIA [Suspect]
     Active Substance: ABATACEPT
     Indication: Autoimmune lymphoproliferative syndrome
     Route: 058
     Dates: start: 202211

REACTIONS (2)
  - Product dose omission issue [Unknown]
  - Off label use [Unknown]
